FAERS Safety Report 4719721-6 (Version None)
Quarter: 2005Q3

REPORT INFORMATION
  Report Type: 
  Country: None (occurrence: None)
  Receive Date: 20050721
  Receipt Date: 20040629
  Transmission Date: 20060218
  Serious: Yes (Other)
  Sender: FDA-Public Use
  Company Number: US-GLAXOSMITHKLINE-A0516595A

PATIENT
  Sex: Male
  Weight: 117.3 kg

DRUGS (7)
  1. AVANDIA [Suspect]
     Route: 048
     Dates: start: 20000918, end: 20010501
  2. HUMULIN [Concomitant]
     Route: 058
  3. WELLBUTRIN [Concomitant]
  4. ACCUPRIL [Concomitant]
  5. ZIAC [Concomitant]
  6. DERMADEX [Concomitant]
  7. VIAGRA [Concomitant]

REACTIONS (1)
  - CARDIAC FAILURE CONGESTIVE [None]
